APPROVED DRUG PRODUCT: PROMETHAZINE HYDROCHLORIDE
Active Ingredient: PROMETHAZINE HYDROCHLORIDE
Strength: 25MG
Dosage Form/Route: TABLET;ORAL
Application: A091179 | Product #002 | TE Code: AB
Applicant: AMNEAL PHARMACEUTICALS NY LLC
Approved: Dec 13, 2010 | RLD: No | RS: No | Type: RX